FAERS Safety Report 18176865 (Version 2)
Quarter: 2020Q4

REPORT INFORMATION
  Report Type: Spontaneous
  Country: CZ (occurrence: CZ)
  Receive Date: 20200820
  Receipt Date: 20201105
  Transmission Date: 20210113
  Serious: Yes (Hospitalization, Other)
  Sender: FDA-Public Use
  Company Number: CZ-BRISTOL-MYERS SQUIBB COMPANY-BMS-2020-065389

PATIENT
  Sex: Female

DRUGS (3)
  1. OPDIVO [Suspect]
     Active Substance: NIVOLUMAB
     Dosage: 480 MG, Q4WK (MONOTHERAPY)
     Route: 065
     Dates: start: 20200721
  2. IPILIMUMAB [Suspect]
     Active Substance: IPILIMUMAB
     Indication: METASTATIC MALIGNANT MELANOMA
     Dosage: 3MG/KG EVERY 3 WEEKS 4X
     Route: 065
     Dates: start: 20200407
  3. OPDIVO [Suspect]
     Active Substance: NIVOLUMAB
     Indication: METASTATIC MALIGNANT MELANOMA
     Dosage: 1MG/KG EVERY 3 WEEKS 4X
     Route: 065
     Dates: start: 20200407

REACTIONS (5)
  - Pruritus [Unknown]
  - Glucocorticoid deficiency [Unknown]
  - Peripheral swelling [Unknown]
  - Dysgeusia [Unknown]
  - Rash [Unknown]

NARRATIVE: CASE EVENT DATE: 202004
